FAERS Safety Report 16161859 (Version 2)
Quarter: 2019Q4

REPORT INFORMATION
  Report Type: Spontaneous
  Country: CN (occurrence: CN)
  Receive Date: 20190405
  Receipt Date: 20191119
  Transmission Date: 20200122
  Serious: Yes (Hospitalization)
  Sender: FDA-Public Use
  Company Number: CN-ASTRAZENECA-2019SE50820

PATIENT
  Age: 74 Year
  Sex: Female
  Weight: 50 kg

DRUGS (2)
  1. BUDESONIDE. [Suspect]
     Active Substance: BUDESONIDE
     Indication: ASTHMA
     Route: 055
     Dates: start: 20190312, end: 20190312
  2. STERILIZED WATER FOR INJECTION [Concomitant]
     Dosage: 2ML/0.5 DAYS, INHALATION
     Dates: start: 20190312, end: 20190312

REACTIONS (1)
  - Wheezing [Recovering/Resolving]
